FAERS Safety Report 8362504-9 (Version None)
Quarter: 2012Q2

REPORT INFORMATION
  Report Type: 
  Country: None (occurrence: None)
  Receive Date: 20120514
  Receipt Date: 20120505
  Transmission Date: 20120825
  Serious: Yes (Death)
  Sender: FDA-Public Use
  Company Number: IPC201205-000194

PATIENT
  Age: 69 Year
  Sex: Male

DRUGS (9)
  1. GLIPIZIDE [Suspect]
  2. CLOPIDOGREL [Suspect]
  3. GABAPENTIN [Suspect]
  4. LISINOPRIL [Suspect]
  5. OMEPRAZOLE [Suspect]
  6. METFORMIN HCL [Suspect]
  7. SERTRALINE HYDROCHLORIDE [Suspect]
  8. ROSUVASTATIN [Suspect]
  9. METOPROLOL TARTRATE [Suspect]

REACTIONS (19)
  - BLOOD CREATININE INCREASED [None]
  - BLOOD PRESSURE DECREASED [None]
  - FAECALOMA [None]
  - GENERAL PHYSICAL HEALTH DETERIORATION [None]
  - DRUG LEVEL INCREASED [None]
  - ABDOMINAL PAIN [None]
  - OCCULT BLOOD POSITIVE [None]
  - VOMITING [None]
  - LUNG INFILTRATION [None]
  - LACTIC ACIDOSIS [None]
  - HYPERHIDROSIS [None]
  - INTESTINAL DILATATION [None]
  - SEPSIS [None]
  - NAUSEA [None]
  - RESPIRATORY RATE INCREASED [None]
  - HYPERKALAEMIA [None]
  - BLOOD GLUCOSE INCREASED [None]
  - BLOOD UREA INCREASED [None]
  - WHITE BLOOD CELL COUNT INCREASED [None]
